FAERS Safety Report 6829984-9 (Version None)
Quarter: 2010Q3

REPORT INFORMATION
  Report Type: 
  Country: None (occurrence: None)
  Receive Date: 20100711
  Receipt Date: 20100415
  Transmission Date: 20110219
  Serious: No
  Sender: FDA-Public Use
  Company Number: US-ALLERGAN-1004993US

PATIENT
  Age: 59 Year
  Sex: Female

DRUGS (3)
  1. LATISSE [Suspect]
     Indication: GROWTH OF EYELASHES
     Dosage: 2 GTT, UNK
     Dates: start: 20091001
  2. DIURETIC                           /00022001/ [Concomitant]
     Indication: HEART RATE IRREGULAR
     Dosage: UNK
  3. SOOTHE XP EYE DROPS [Concomitant]
     Indication: DRY EYE
     Dosage: UNK

REACTIONS (1)
  - MADAROSIS [None]
